FAERS Safety Report 4695177-7 (Version None)
Quarter: 2005Q2

REPORT INFORMATION
  Report Type: 
  Country: None (occurrence: None)
  Receive Date: 20050617
  Receipt Date: 20050613
  Transmission Date: 20051028
  Serious: Yes (Hospitalization)
  Sender: FDA-Public Use
  Company Number: 26742

PATIENT
  Age: 74 Year
  Sex: Female

DRUGS (3)
  1. FLECAINIDE ACETATE [Suspect]
     Dosage: ORAL
     Route: 048
     Dates: end: 20050408
  2. COTAREG (VALSARTAN, HYDROCHLOTHIAZIDE) [Suspect]
     Indication: ESSENTIAL HYPERTENSION
     Dosage: ORAL
     Route: 048
     Dates: end: 20050407
  3. KERLONE [Suspect]
     Indication: ESSENTIAL HYPERTENSION
     Dosage: ORAL
     Route: 048
     Dates: end: 20050414

REACTIONS (1)
  - INTERSTITIAL LUNG DISEASE [None]
